FAERS Safety Report 4776636-5 (Version None)
Quarter: 2005Q3

REPORT INFORMATION
  Report Type: 
  Country: None (occurrence: None)
  Receive Date: 20050923
  Receipt Date: 20050713
  Transmission Date: 20060218
  Serious: Yes (Other)
  Sender: FDA-Public Use
  Company Number: 2005AP03981

PATIENT
  Age: 22677 Day
  Sex: Female

DRUGS (6)
  1. ARIMIDEX [Suspect]
     Indication: BREAST CANCER
     Route: 048
     Dates: start: 20030616, end: 20050704
  2. EUGLUCON [Concomitant]
     Indication: DIABETES MELLITUS
     Route: 048
     Dates: start: 20020816
  3. CALDEMIN [Concomitant]
     Indication: DIABETES MELLITUS
     Route: 048
     Dates: start: 20030707
  4. DOCETAXEL [Concomitant]
     Dates: start: 19990601
  5. VINORELBINE [Concomitant]
     Dates: start: 19990601
  6. RADIATION THERAPY [Concomitant]
     Dosage: 50 GY TO LEFT CERVICAL LYMPH NODES AND UNDER THE SKIN OF HER BACK
     Dates: start: 20030310, end: 20030407

REACTIONS (3)
  - CRYPTOGENIC ORGANIZING PNEUMONIA [None]
  - SKIN NODULE [None]
  - STEVENS-JOHNSON SYNDROME [None]
